FAERS Safety Report 21183628 (Version 5)
Quarter: 2023Q1

REPORT INFORMATION
  Report Type: Report from Study
  Country: US (occurrence: US)
  Receive Date: 20220808
  Receipt Date: 20230320
  Transmission Date: 20230418
  Serious: Yes (Hospitalization, Other)
  Sender: FDA-Public Use
  Company Number: US-TAKEDA-2022TUS053570

PATIENT
  Sex: Female
  Weight: 49.887 kg

DRUGS (16)
  1. TEDUGLUTIDE [Suspect]
     Active Substance: TEDUGLUTIDE
     Indication: Short-bowel syndrome
     Dosage: 1.35 MILLIGRAM, QD
     Route: 058
     Dates: start: 20220531
  2. TEDUGLUTIDE [Suspect]
     Active Substance: TEDUGLUTIDE
     Indication: Short-bowel syndrome
     Dosage: 1.35 MILLIGRAM, QD
     Route: 058
     Dates: start: 20220531
  3. TEDUGLUTIDE [Suspect]
     Active Substance: TEDUGLUTIDE
     Indication: Short-bowel syndrome
     Dosage: 1.35 MILLIGRAM, QD
     Route: 058
     Dates: start: 20220531
  4. TEDUGLUTIDE [Suspect]
     Active Substance: TEDUGLUTIDE
     Indication: Short-bowel syndrome
     Dosage: 1.35 MILLIGRAM, QD
     Route: 058
     Dates: start: 20220531
  5. TEDUGLUTIDE [Suspect]
     Active Substance: TEDUGLUTIDE
     Dosage: 1.35 MILLIGRAM, QD
     Route: 058
     Dates: start: 20220601
  6. TEDUGLUTIDE [Suspect]
     Active Substance: TEDUGLUTIDE
     Dosage: 1.35 MILLIGRAM, QD
     Route: 058
     Dates: start: 20220601
  7. TEDUGLUTIDE [Suspect]
     Active Substance: TEDUGLUTIDE
     Dosage: 1.35 MILLIGRAM, QD
     Route: 058
     Dates: start: 20220601
  8. TEDUGLUTIDE [Suspect]
     Active Substance: TEDUGLUTIDE
     Dosage: 1.35 MILLIGRAM, QD
     Route: 058
     Dates: start: 20220601
  9. TEDUGLUTIDE [Suspect]
     Active Substance: TEDUGLUTIDE
     Dosage: 1.35 MILLIGRAM, QD
     Route: 058
     Dates: start: 202206
  10. TEDUGLUTIDE [Suspect]
     Active Substance: TEDUGLUTIDE
     Dosage: 1.35 MILLIGRAM, QD
     Route: 058
     Dates: start: 202206
  11. TEDUGLUTIDE [Suspect]
     Active Substance: TEDUGLUTIDE
     Dosage: 1.35 MILLIGRAM, QD
     Route: 058
     Dates: start: 202206
  12. TEDUGLUTIDE [Suspect]
     Active Substance: TEDUGLUTIDE
     Dosage: 1.35 MILLIGRAM, QD
     Route: 058
     Dates: start: 202206
  13. TEDUGLUTIDE [Suspect]
     Active Substance: TEDUGLUTIDE
     Dosage: 1.35 MILLIGRAM, QD
     Route: 058
     Dates: start: 20220806
  14. TEDUGLUTIDE [Suspect]
     Active Substance: TEDUGLUTIDE
     Dosage: 1.35 MILLIGRAM, QD
     Route: 058
     Dates: start: 20220806
  15. TEDUGLUTIDE [Suspect]
     Active Substance: TEDUGLUTIDE
     Dosage: 1.35 MILLIGRAM, QD
     Route: 058
     Dates: start: 20220806
  16. TEDUGLUTIDE [Suspect]
     Active Substance: TEDUGLUTIDE
     Dosage: 1.35 MILLIGRAM, QD
     Route: 058
     Dates: start: 20220806

REACTIONS (10)
  - Asthenia [Unknown]
  - Dehydration [Unknown]
  - Weight decreased [Unknown]
  - Musculoskeletal stiffness [Unknown]
  - Blood magnesium decreased [Unknown]
  - Electrolyte imbalance [Unknown]
  - Renal impairment [Unknown]
  - Gastric ulcer perforation [Unknown]
  - Constipation [Unknown]
  - Gastrointestinal motility disorder [Unknown]
